FAERS Safety Report 24945321 (Version 2)
Quarter: 2025Q3

REPORT INFORMATION
  Report Type: Spontaneous
  Country: EU (occurrence: EU)
  Receive Date: 20250209
  Receipt Date: 20250810
  Transmission Date: 20251020
  Serious: Yes (Other)
  Sender: ALEXION PHARMACEUTICALS
  Company Number: EU-AstraZeneca-CH-00794668A

PATIENT
  Age: 37 Year
  Sex: Male

DRUGS (7)
  1. DAPAGLIFLOZIN [Suspect]
     Active Substance: DAPAGLIFLOZIN
     Dates: start: 202106, end: 2025
  2. BISOPROLOL [Concomitant]
     Active Substance: BISOPROLOL
     Route: 065
  3. ROSUVASTATIN [Concomitant]
     Active Substance: ROSUVASTATIN
     Route: 065
  4. EZETIMIBE [Concomitant]
     Active Substance: EZETIMIBE
     Route: 065
  5. EPLERENONE [Concomitant]
     Active Substance: EPLERENONE
     Route: 065
  6. SACUBITRIL [Concomitant]
     Active Substance: SACUBITRIL
     Route: 065
  7. VALSARTAN [Concomitant]
     Active Substance: VALSARTAN
     Route: 065

REACTIONS (4)
  - Stenosis [Unknown]
  - Ventricular extrasystoles [Unknown]
  - Aneurysm [Unknown]
  - Anal incontinence [Unknown]

NARRATIVE: CASE EVENT DATE: 20210801
